FAERS Safety Report 9733065 (Version 2)
Quarter: 2014Q1

REPORT INFORMATION
  Report Type: Spontaneous
  Country: US (occurrence: US)
  Receive Date: 20131205
  Receipt Date: 20140318
  Transmission Date: 20141002
  Serious: Yes (Other)
  Sender: FDA-Public Use
  Company Number: US-PFIZER INC-2013345092

PATIENT
  Age: 67 Year
  Sex: Female
  Weight: 50.79 kg

DRUGS (1)
  1. PREMARIN [Suspect]
     Indication: HORMONE REPLACEMENT THERAPY
     Dosage: 1.25 MG, 1X/DAY
     Route: 048

REACTIONS (3)
  - Diabetes mellitus [Unknown]
  - Blood pressure abnormal [Unknown]
  - Arthritis [Unknown]
